FAERS Safety Report 10087293 (Version 2)
Quarter: 2014Q2

REPORT INFORMATION
  Report Type: Spontaneous
  Country: US (occurrence: US)
  Receive Date: 20140418
  Receipt Date: 20140418
  Transmission Date: 20141212
  Serious: Yes (Hospitalization, Other)
  Sender: FDA-Public Use
  Company Number: US-RB-063094-14

PATIENT
  Age: 0 Year
  Sex: Female

DRUGS (13)
  1. SUBOXONE TABLET [Suspect]
     Indication: PRODUCT USED FOR UNKNOWN INDICATION
     Route: 064
     Dates: start: 200805, end: 20090117
  2. SUBOXONE TABLET [Suspect]
     Indication: DRUG DEPENDENCE
     Route: 063
     Dates: start: 2009
  3. SUBOXONE TABLET [Suspect]
     Dosage: PATERNAL EXPOSURE DOSING UNKNOWN
     Route: 064
     Dates: start: 200805
  4. SUBUTEX [Suspect]
     Indication: DRUG DEPENDENCE
     Route: 064
     Dates: start: 200805, end: 200901
  5. OPIATES [Suspect]
     Indication: PRODUCT USED FOR UNKNOWN INDICATION
     Dosage: MATERNAL DOSING DETAILS UNKNOWN
     Route: 064
     Dates: start: 200805
  6. NICOTINE [Concomitant]
     Indication: PRODUCT USED FOR UNKNOWN INDICATION
     Dosage: THE NEONATE^S MOTHER WAS SMOKING 10 CIGARETTES DAILY
     Route: 064
     Dates: start: 200805, end: 20090117
  7. NICOTINE [Concomitant]
     Dosage: THE NEONATE^S MOTHER WAS SMOKING 10 CIGARTETTES DAILY
     Route: 063
     Dates: start: 2009, end: 2009
  8. PRENATAL VITAMIN [Concomitant]
     Dosage: THE NEONATE^S MOTHER WAS TAKING IT ONCE DAILY
     Route: 064
     Dates: start: 200805, end: 20090117
  9. PRENATAL VITAMIN [Concomitant]
     Indication: PREGNANCY
     Dosage: DOSING DETAILS UNKNOWN; THE NEONATE^S MOTHER WAS TAKING IT ONCE DAILY
     Route: 063
     Dates: start: 200901, end: 200901
  10. IRON SUPPLEMENT [Concomitant]
     Dosage: THE NEONATE^S MOTHER WAS TAKING IT ONCE DAILY
     Route: 064
     Dates: start: 2008, end: 20090117
  11. IRON SUPPLEMENT [Concomitant]
     Indication: ANAEMIA OF PREGNANCY
     Dosage: THE NEONATE^S MOTHER WAS TAKING IT ONCE DAILY
     Route: 063
     Dates: start: 2009
  12. TYLENOL [Concomitant]
     Indication: BACK PAIN
     Dosage: THE NEONATE^S MOTHER WAS TAKING IT TWICE DAILY
     Route: 064
     Dates: start: 200809, end: 20090117
  13. TYLENOL [Concomitant]
     Indication: HEADACHE
     Dosage: THE NEONATE^S MOTHER WAS TAKING IT TWICE DAILY
     Route: 063
     Dates: start: 2009, end: 2009

REACTIONS (9)
  - Exposure during breast feeding [Recovered/Resolved]
  - Drug withdrawal syndrome neonatal [Recovered/Resolved]
  - Vomiting projectile [Unknown]
  - Foetal exposure during pregnancy [Recovered/Resolved]
  - Premature baby [Recovered/Resolved]
  - Drug withdrawal syndrome neonatal [Recovered/Resolved]
  - Sneezing [Recovered/Resolved]
  - Respiratory disorder neonatal [Recovered/Resolved]
  - Rhinorrhoea [Recovered/Resolved]
